FAERS Safety Report 8769398 (Version 1)
Quarter: 2012Q4

REPORT INFORMATION
  Report Type: 
  Country: NO (occurrence: NO)
  Receive Date: 20120905
  Receipt Date: 20120905
  Transmission Date: 20130627
  Serious: Yes (Other)
  Sender: FDA-Public Use
  Company Number: NO-ASTRAZENECA-2012SE64858

PATIENT
  Age: 18 Year
  Sex: Male

DRUGS (1)
  1. SEROQUEL DEPOT [Suspect]
     Route: 048

REACTIONS (1)
  - Amnesia [Not Recovered/Not Resolved]
